FAERS Safety Report 4599548-9 (Version None)
Quarter: 2005Q1

REPORT INFORMATION
  Report Type: 
  Country: None (occurrence: None)
  Receive Date: 20050307
  Receipt Date: 20050222
  Transmission Date: 20050727
  Serious: Yes (Other)
  Sender: FDA-Public Use
  Company Number: DE-JNJFOC-20050205838

PATIENT
  Age: 60 Year
  Sex: Female
  Weight: 46 kg

DRUGS (2)
  1. RISPERDAL CONSTA [Suspect]
     Route: 030
  2. RISPERDAL CONSTA [Suspect]
     Indication: SCHIZOPHRENIA
     Route: 030

REACTIONS (3)
  - JAUNDICE CHOLESTATIC [None]
  - PANCREATIC CARCINOMA [None]
  - WEIGHT DECREASED [None]
